FAERS Safety Report 5926150-6 (Version None)
Quarter: 2008Q4

REPORT INFORMATION
  Report Type: 
  Country: None (occurrence: None)
  Receive Date: 20081017
  Receipt Date: 20081006
  Transmission Date: 20090506
  Serious: Yes (Hospitalization)
  Sender: FDA-Public Use
  Company Number: 2008BI019213

PATIENT
  Sex: Female

DRUGS (1)
  1. TYSABRI [Suspect]
     Indication: MULTIPLE SCLEROSIS
     Dosage: 300 MG;QM;IV
     Route: 042
     Dates: start: 20070404

REACTIONS (5)
  - ASTHMA [None]
  - LUNG NEOPLASM [None]
  - MALAISE [None]
  - NO THERAPEUTIC RESPONSE [None]
  - VASCULITIS [None]
